FAERS Safety Report 9772333 (Version 1)
Quarter: 2013Q4

REPORT INFORMATION
  Report Type: Spontaneous
  Country: US (occurrence: None)
  Receive Date: 20131218
  Receipt Date: 20131218
  Transmission Date: 20140711
  Serious: Yes (Other)
  Sender: FDA-Public Use
  Company Number: None

PATIENT
  Age: 62 Year
  Sex: Male
  Weight: 68.95 kg

DRUGS (1)
  1. VALSARTAN HCTZ [Suspect]
     Dosage: 820/25 MG
     Route: 048
     Dates: start: 20121002, end: 20131101

REACTIONS (1)
  - Rash [None]
